FAERS Safety Report 8274991-5 (Version None)
Quarter: 2012Q2

REPORT INFORMATION
  Report Type: 
  Country: None (occurrence: None)
  Receive Date: 20120411
  Receipt Date: 20120405
  Transmission Date: 20120825
  Serious: Yes (Other)
  Sender: FDA-Public Use
  Company Number: US-AMGEN-USASP2011061655

PATIENT
  Age: 66 Year
  Sex: Female
  Weight: 73.469 kg

DRUGS (3)
  1. AFINITOR [Concomitant]
     Indication: RENAL CANCER
     Dosage: 10 MG, QD
     Route: 048
     Dates: start: 20110725
  2. PREDNISONE TAB [Concomitant]
     Dosage: UNK
  3. XGEVA [Suspect]
     Indication: METASTASES TO BONE
     Dosage: 120 MG, Q4WK
     Route: 058
     Dates: start: 20111005

REACTIONS (6)
  - ANAPHYLACTIC REACTION [None]
  - OEDEMA MOUTH [None]
  - REACTION TO FOOD ADDITIVE [None]
  - STREPTOCOCCUS TEST POSITIVE [None]
  - HYPERLIPIDAEMIA [None]
  - ORAL PAIN [None]
